FAERS Safety Report 4583824-X (Version None)
Quarter: 2005Q1

REPORT INFORMATION
  Report Type: 
  Country: None (occurrence: None)
  Receive Date: 20050211
  Receipt Date: 20050131
  Transmission Date: 20050727
  Serious: Yes (Hospitalization)
  Sender: FDA-Public Use
  Company Number: 2005017217

PATIENT
  Age: 25 Year
  Sex: Male
  Weight: 83 kg

DRUGS (3)
  1. VIBRAMYCIN [Suspect]
     Indication: GENITAL INFECTION FEMALE
     Dosage: 200 MG (1 D), ORAL
     Route: 048
     Dates: start: 20041108, end: 20041115
  2. TINIDAZOLE (TINIDAZOLE) [Suspect]
     Indication: GENITAL INFECTION FEMALE
     Dosage: 2000 MG (1 D), ORAL
     Route: 048
     Dates: start: 20041108, end: 20041115
  3. POLYGYNAX (ACETARSOL, NEOMYCIN, NYSTATIN, POLYMYXIN B SULFATE) [Suspect]
     Indication: GENITAL INFECTION FEMALE
     Dosage: (1 D), VAGINAL
     Route: 067
     Dates: start: 20041108, end: 20041115

REACTIONS (3)
  - ACUTE LEUKAEMIA [None]
  - CHRONIC HEPATITIS [None]
  - CONDITION AGGRAVATED [None]
